FAERS Safety Report 4717036-3 (Version None)
Quarter: 2005Q3

REPORT INFORMATION
  Report Type: 
  Country: None (occurrence: None)
  Receive Date: 20050715
  Receipt Date: 20050707
  Transmission Date: 20060218
  Serious: Yes (Hospitalization)
  Sender: FDA-Public Use
  Company Number: 200510333BYL

PATIENT
  Age: 59 Year
  Sex: Male
  Weight: 65 kg

DRUGS (3)
  1. ASPIRIN [Suspect]
     Indication: CEREBRAL INFARCTION
     Dosage: 300 MG, TOTAL DAILY, ORAL
     Route: 048
     Dates: start: 20050624, end: 20050706
  2. AMARYL [Concomitant]
  3. LIPITOR [Concomitant]

REACTIONS (3)
  - BLOOD PRESSURE INCREASED [None]
  - BRAIN STEM INFARCTION [None]
  - CEREBRAL HAEMORRHAGE [None]
